FAERS Safety Report 8200439-2 (Version None)
Quarter: 2012Q1

REPORT INFORMATION
  Report Type: 
  Country: None (occurrence: None)
  Receive Date: 20120309
  Receipt Date: 20120309
  Transmission Date: 20120608
  Serious: No
  Sender: FDA-Public Use
  Company Number: None

PATIENT
  Sex: Male
  Weight: 86.4 kg

DRUGS (1)
  1. CELEBREX [Suspect]
     Indication: HIP ARTHROPLASTY
     Dosage: 200MG DAILY BY MOUTH
     Route: 048
     Dates: start: 20120123, end: 20120126

REACTIONS (1)
  - JAUNDICE [None]
